FAERS Safety Report 11735275 (Version 2)
Quarter: 2019Q3

REPORT INFORMATION
  Report Type: Spontaneous
  Country: FR (occurrence: FR)
  Receive Date: 20151113
  Receipt Date: 20190812
  Transmission Date: 20191004
  Serious: Yes (Death, Hospitalization)
  Sender: FDA-Public Use
  Company Number: PHHY2015FR144661

PATIENT
  Age: 80 Year
  Sex: Female
  Weight: 60 kg

DRUGS (11)
  1. SULFAMETHOXAZOLE, TRIMETHOPRIM [Interacting]
     Active Substance: SULFAMETHOXAZOLE\TRIMETHOPRIM
     Indication: PROPHYLAXIS
     Dosage: 160/ 800 MG THREE TIMES IN A WEEK
     Route: 065
     Dates: start: 201404, end: 201404
  2. FOLINATE CALCIUM [Concomitant]
     Active Substance: LEUCOVORIN CALCIUM
     Indication: PROPHYLAXIS
     Dosage: 25 MG, QW
     Route: 065
  3. ATORVASTATIN [Suspect]
     Active Substance: ATORVASTATIN
     Indication: HYPERCHOLESTEROLAEMIA
     Route: 065
  4. OMEPRAZOLE. [Suspect]
     Active Substance: OMEPRAZOLE
     Indication: PROPHYLAXIS
     Dosage: 20 MG, QD
     Route: 065
     Dates: start: 201404, end: 201404
  5. SOTALOL. [Concomitant]
     Active Substance: SOTALOL
     Indication: HYPERTENSION
     Dosage: UNK
     Route: 065
  6. BORTEZOMIB. [Suspect]
     Active Substance: BORTEZOMIB
     Indication: PLASMA CELL MYELOMA
     Dosage: 1.3 MG/M2, SUP(2) ON DAY 1, 4, 8, 11, 22, 25, 29 AND 32
     Route: 058
  7. VALACICLOVIR [Suspect]
     Active Substance: VALACYCLOVIR HYDROCHLORIDE
     Indication: PROPHYLAXIS
     Dosage: 500 MG, QD
     Route: 065
     Dates: start: 2014, end: 2014
  8. CANDESARTAN CILEXETIL. [Suspect]
     Active Substance: CANDESARTAN CILEXETIL
     Indication: HYPERTENSION
     Dosage: UNK
     Route: 065
  9. MELPHALAN. [Interacting]
     Active Substance: MELPHALAN
     Indication: PLASMA CELL MYELOMA
     Dosage: 9 MG/M2, UNK, FROM DAY 1 TO DAY 4
     Route: 065
  10. PREDNISOLONE. [Concomitant]
     Active Substance: PREDNISOLONE
     Indication: PLASMA CELL MYELOMA
     Dosage: 60 UNK, ON DAYS 1-4
  11. PREDNISONE. [Concomitant]
     Active Substance: PREDNISONE
     Indication: PLASMA CELL MYELOMA
     Dosage: 60 MG, SUP(2) DAY 1 TO 4
     Route: 065

REACTIONS (23)
  - Renal failure [Fatal]
  - Oliguria [Fatal]
  - Somnolence [Fatal]
  - Pyrexia [Fatal]
  - Hyperkalaemia [Recovered/Resolved]
  - Polyneuropathy [Fatal]
  - Hyponatraemia [Recovered/Resolved]
  - Altered state of consciousness [Recovering/Resolving]
  - Septic shock [Fatal]
  - Muscular weakness [Fatal]
  - Urine abnormality [Fatal]
  - Vomiting [Fatal]
  - Diarrhoea [Fatal]
  - Confusional state [Fatal]
  - Hypotension [Fatal]
  - Sepsis [Fatal]
  - Drug interaction [Fatal]
  - Toxicity to various agents [Fatal]
  - Chills [Fatal]
  - Acute kidney injury [Fatal]
  - Syncope [Fatal]
  - Pancytopenia [Fatal]
  - Back pain [Fatal]

NARRATIVE: CASE EVENT DATE: 2014
